FAERS Safety Report 11471452 (Version 1)
Quarter: 2015Q3

REPORT INFORMATION
  Report Type: Spontaneous
  Country: US (occurrence: US)
  Receive Date: 20150908
  Receipt Date: 20150908
  Transmission Date: 20151125
  Serious: Yes (Other)
  Sender: FDA-Public Use
  Company Number: US-AMGEN-USASP2015090130

PATIENT
  Age: 79 Year
  Sex: Female

DRUGS (1)
  1. PROLIA [Suspect]
     Active Substance: DENOSUMAB
     Indication: OSTEOARTHRITIS
     Dosage: 60 MG/ML, Q6MO
     Route: 058
     Dates: start: 20150319

REACTIONS (4)
  - Off label use [Unknown]
  - Hypertension [Unknown]
  - Vertigo [Unknown]
  - Malaise [Unknown]
